FAERS Safety Report 5702847-8 (Version None)
Quarter: 2008Q2

REPORT INFORMATION
  Report Type: 
  Country: None (occurrence: None)
  Receive Date: 20080411
  Receipt Date: 20080407
  Transmission Date: 20081010
  Serious: Yes (Disabling)
  Sender: FDA-Public Use
  Company Number: US-ASTRAZENECA-2008UW07010

PATIENT
  Age: 61 Year
  Sex: Female

DRUGS (5)
  1. ARIMIDEX [Suspect]
     Indication: BREAST CANCER
     Route: 048
     Dates: start: 20080101
  2. ACIFEX [Concomitant]
  3. VICODIN [Concomitant]
  4. XANAX [Concomitant]
  5. AMBIEN [Concomitant]

REACTIONS (4)
  - BONE PAIN [None]
  - FATIGUE [None]
  - MYALGIA [None]
  - TENDON PAIN [None]
